FAERS Safety Report 9859260 (Version 3)
Quarter: 2015Q3

REPORT INFORMATION
  Report Type: Spontaneous
  Country: US (occurrence: US)
  Receive Date: 20140131
  Receipt Date: 20150721
  Transmission Date: 20151125
  Serious: No
  Sender: FDA-Public Use
  Company Number: US-GILEAD-2013-0068403

PATIENT
  Age: 36 Year
  Sex: Male
  Weight: 72.56 kg

DRUGS (12)
  1. AQUADEKS                           /07517101/ [Concomitant]
     Indication: CYSTIC FIBROSIS
  2. AZITHRO [Concomitant]
     Indication: LUNG DISORDER
  3. AQUADEKS                           /07517101/ [Concomitant]
     Indication: PANCREATIC INSUFFICIENCY
  4. CAYSTON [Suspect]
     Active Substance: AZTREONAM
     Indication: CYSTIC FIBROSIS
     Dosage: 75 MG, CYCLICAL
     Route: 055
     Dates: start: 20120726
  5. SODIUM CHLORIDE. [Concomitant]
     Active Substance: SODIUM CHLORIDE
     Indication: INCREASED VISCOSITY OF BRONCHIAL SECRETION
  6. LANTUS [Concomitant]
     Active Substance: INSULIN GLARGINE
     Indication: BLOOD GLUCOSE ABNORMAL
  7. BUDESONIDE. [Concomitant]
     Active Substance: BUDESONIDE
     Indication: CROHN^S DISEASE
  8. NOVOLOG [Concomitant]
     Active Substance: INSULIN ASPART
     Indication: BLOOD GLUCOSE ABNORMAL
  9. ZENPEP [Concomitant]
     Active Substance: PANCRELIPASE\PANCRELIPASE AMYLASE\PANCRELIPASE LIPASE\PANCRELIPASE PROTEASE
     Indication: PANCREATIC INSUFFICIENCY
  10. OMEPRAZOLE. [Concomitant]
     Active Substance: OMEPRAZOLE
     Indication: GASTROOESOPHAGEAL REFLUX DISEASE
  11. ADVAIR HFA [Concomitant]
     Active Substance: FLUTICASONE PROPIONATE\SALMETEROL XINAFOATE
     Indication: SINUSITIS
  12. PULMOZYME [Concomitant]
     Active Substance: DORNASE ALFA
     Indication: INCREASED VISCOSITY OF BRONCHIAL SECRETION

REACTIONS (4)
  - Rash [Recovered/Resolved]
  - Arthralgia [Recovered/Resolved]
  - Pain in extremity [Recovered/Resolved]
  - Pyrexia [Recovered/Resolved]

NARRATIVE: CASE EVENT DATE: 20130112
